FAERS Safety Report 9640608 (Version 2)
Quarter: 2013Q4

REPORT INFORMATION
  Report Type: Report from Study
  Country: US (occurrence: US)
  Receive Date: 20131023
  Receipt Date: 20131023
  Transmission Date: 20140711
  Serious: Yes (Other)
  Sender: FDA-Public Use
  Company Number: US-ABBVIE-13P-163-1110417-00

PATIENT
  Age: 25 Year
  Sex: Female
  Weight: 80.9 kg

DRUGS (5)
  1. LUPRON DEPOT [Suspect]
     Indication: ENDOMETRIOSIS
     Dates: start: 200512, end: 200710
  2. LUPRON DEPOT [Suspect]
     Dates: start: 20130521
  3. LUPRON DEPOT [Suspect]
     Indication: ENDOMETRIOSIS
     Dates: start: 20130618
  4. NORETHINDRONE ACETATE [Concomitant]
     Indication: PRODUCT USED FOR UNKNOWN INDICATION
     Dates: start: 20130521
  5. WELLBUTRIN [Concomitant]
     Indication: DEPRESSION

REACTIONS (17)
  - Pain [Unknown]
  - Pain [Unknown]
  - Pain [Not Recovered/Not Resolved]
  - Hot flush [Unknown]
  - Hot flush [Recovering/Resolving]
  - Feeling hot [Recovering/Resolving]
  - Hyperhidrosis [Recovering/Resolving]
  - Abdominal pain [Not Recovered/Not Resolved]
  - Dysuria [Not Recovered/Not Resolved]
  - Injection site pain [Recovered/Resolved]
  - Injection site pain [Recovered/Resolved]
  - Endometriosis [Unknown]
  - Scar [Unknown]
  - Ovarian enlargement [Unknown]
  - Pain [Unknown]
  - Night sweats [Not Recovered/Not Resolved]
  - Blood pressure increased [Not Recovered/Not Resolved]
